FAERS Safety Report 9601278 (Version 2)
Quarter: 2013Q4

REPORT INFORMATION
  Report Type: Report from Study
  Country: CA (occurrence: CA)
  Receive Date: 20131006
  Receipt Date: 20131006
  Transmission Date: 20140711
  Serious: Yes (Death, Other)
  Sender: FDA-Public Use
  Company Number: PHHY2009CA18895

PATIENT
  Age: 62 Year
  Sex: Male

DRUGS (2)
  1. ZOMETA [Suspect]
     Indication: PROSTATE CANCER METASTATIC
     Dosage: 4 MG, EVERY 12 WEEKS
     Dates: start: 20090225, end: 201008
  2. PREDNISONE [Concomitant]

REACTIONS (11)
  - Death [Fatal]
  - Bone pain [Recovering/Resolving]
  - Bedridden [Recovered/Resolved]
  - Tooth fracture [Unknown]
  - Tooth infection [Unknown]
  - Platelet count increased [Unknown]
  - Monocyte count increased [Unknown]
  - Nasopharyngitis [Recovering/Resolving]
  - Red blood cell count decreased [Unknown]
  - Haemoglobin decreased [Unknown]
  - Haematocrit decreased [Unknown]
